FAERS Safety Report 5898462-6 (Version None)
Quarter: 2008Q3

REPORT INFORMATION
  Report Type: 
  Country: None (occurrence: None)
  Receive Date: 20080925
  Receipt Date: 20071115
  Transmission Date: 20090109
  Serious: No
  Sender: FDA-Public Use
  Company Number: A0694783A

PATIENT
  Age: 39 Year
  Sex: Female

DRUGS (6)
  1. WELLBUTRIN XL [Suspect]
     Indication: DEPRESSION
     Dosage: 150MG PER DAY
     Route: 048
     Dates: start: 20071113
  2. PREDNISONE [Concomitant]
  3. COMBIVENT [Concomitant]
  4. ADVAIR DISKUS 100/50 [Concomitant]
  5. ALBUTEROL [Concomitant]
  6. UNKNOWN MEDICATION [Concomitant]

REACTIONS (1)
  - INSOMNIA [None]
